FAERS Safety Report 10051689 (Version 1)
Quarter: 2014Q1

REPORT INFORMATION
  Report Type: Spontaneous
  Country: US (occurrence: None)
  Receive Date: 20140331
  Receipt Date: 20140331
  Transmission Date: 20141002
  Serious: Yes (Death)
  Sender: FDA-Public Use
  Company Number: UTC-046296

PATIENT
  Sex: Male
  Weight: 30.84 kg

DRUGS (1)
  1. TYVASO [Suspect]
     Indication: PULMONARY ARTERIAL HYPERTENSION
     Dosage: 6 TO 54 MCG (4 IN 1 D), INHALATION
     Dates: start: 20130228

REACTIONS (1)
  - Death [None]
